FAERS Safety Report 8520305-2 (Version None)
Quarter: 2012Q3

REPORT INFORMATION
  Report Type: 
  Country: None (occurrence: None)
  Receive Date: 20120719
  Receipt Date: 20120711
  Transmission Date: 20120928
  Serious: Yes (Other)
  Sender: FDA-Public Use
  Company Number: US-US-EMD SERONO, INC.-7131112

PATIENT
  Sex: Female
  Weight: 79 kg

DRUGS (4)
  1. LOSARTAN POTASSIUM [Concomitant]
     Indication: HYPERTENSION
  2. EFFEXOR [Concomitant]
     Indication: DEPRESSION
  3. REBIF [Suspect]
     Indication: MULTIPLE SCLEROSIS
     Route: 058
     Dates: start: 20051212
  4. VENLAFAXINE [Concomitant]
     Indication: DEPRESSION

REACTIONS (7)
  - UTERINE LEIOMYOMA [None]
  - INJECTION SITE MASS [None]
  - INJECTION SITE PAIN [None]
  - ASPARTATE AMINOTRANSFERASE INCREASED [None]
  - CHOLELITHIASIS [None]
  - VITAMIN D DECREASED [None]
  - BLOOD CALCIUM INCREASED [None]
